FAERS Safety Report 20121287 (Version 1)
Quarter: 2021Q4

REPORT INFORMATION
  Report Type: Report from Study
  Country: US (occurrence: None)
  Receive Date: 20211127
  Receipt Date: 20211127
  Transmission Date: 20220304
  Serious: Yes (Hospitalization)
  Sender: FDA-Public Use
  Company Number: US-ROCHE-2034460

PATIENT
  Age: 43 Year
  Sex: Female
  Weight: 59.1 kg

DRUGS (5)
  1. ATEZOLIZUMAB [Suspect]
     Active Substance: ATEZOLIZUMAB
     Indication: Colorectal cancer metastatic
     Dosage: OVER 30-60 MINUTES ON DAY 1
     Route: 042
     Dates: start: 20171109
  2. BEVACIZUMAB [Suspect]
     Active Substance: BEVACIZUMAB
     Indication: Colorectal cancer metastatic
     Dosage: TOTAL DOSE 448 MG?OVER 30-90 MINUTES ON DAY 1
     Route: 042
     Dates: start: 20171109
  3. BEVACIZUMAB [Suspect]
     Active Substance: BEVACIZUMAB
     Route: 065
     Dates: start: 201401, end: 201406
  4. BEVACIZUMAB [Suspect]
     Active Substance: BEVACIZUMAB
     Route: 065
     Dates: start: 201406, end: 201710
  5. CAPECITABINE [Suspect]
     Active Substance: CAPECITABINE
     Indication: Colorectal cancer metastatic
     Dosage: ON DAY 1-14 OF 21 DAY CYCLE, 850 MG OR 1000 MG/M2?TOTAL DOSE. 42000 MG
     Route: 048
     Dates: start: 20171122

REACTIONS (3)
  - Dysarthria [Unknown]
  - Facial paresis [Unknown]
  - Cerebrovascular accident [Unknown]

NARRATIVE: CASE EVENT DATE: 20171126
